FAERS Safety Report 17279984 (Version 5)
Quarter: 2022Q2

REPORT INFORMATION
  Report Type: Report from Study
  Country: FR (occurrence: FR)
  Receive Date: 20200117
  Receipt Date: 20220527
  Transmission Date: 20220721
  Serious: Yes (Hospitalization, Other)
  Sender: FDA-Public Use
  Company Number: FR-BRISTOL-MYERS SQUIBB COMPANY-BMS-2020-002455

PATIENT
  Age: 65 Year
  Sex: Male
  Weight: 80 kg

DRUGS (19)
  1. IPILIMUMAB [Suspect]
     Active Substance: IPILIMUMAB
     Indication: Renal cell carcinoma
     Dosage: 50 MILLILITER
     Route: 042
     Dates: start: 20191025
  2. NIVOLUMAB [Suspect]
     Active Substance: NIVOLUMAB
     Indication: Renal cell carcinoma
     Dosage: 136 MILLILITER
     Route: 042
     Dates: start: 20191025
  3. TRAMADOL [Concomitant]
     Active Substance: TRAMADOL
     Indication: Product used for unknown indication
     Route: 048
  4. RILMENIDINE PHOSPHATE [Concomitant]
     Active Substance: RILMENIDINE PHOSPHATE
     Indication: Product used for unknown indication
     Dosage: 2 MILLIGRAM
     Route: 048
  5. GLICLAZIDE [Concomitant]
     Active Substance: GLICLAZIDE
     Indication: Product used for unknown indication
     Dosage: UNK
     Route: 048
  6. ATENOLOL [Concomitant]
     Active Substance: ATENOLOL
     Indication: Product used for unknown indication
     Route: 048
  7. TAHOR [Concomitant]
     Active Substance: ATORVASTATIN CALCIUM
     Indication: Product used for unknown indication
     Route: 048
  8. CANDESARTAN CILEXETIL\HYDROCHLOROTHIAZIDE [Concomitant]
     Active Substance: CANDESARTAN CILEXETIL\HYDROCHLOROTHIAZIDE
     Indication: Product used for unknown indication
     Route: 048
  9. AMLODIPINE [Concomitant]
     Active Substance: AMLODIPINE BESYLATE
     Indication: Product used for unknown indication
     Route: 048
  10. ALLOPURINOL [Concomitant]
     Active Substance: ALLOPURINOL
     Indication: Product used for unknown indication
     Route: 048
  11. ASPIRIN DL-LYSINE [Concomitant]
     Active Substance: ASPIRIN DL-LYSINE
     Indication: Product used for unknown indication
     Dosage: UNK
     Route: 048
  12. ETIFOXINE [Concomitant]
     Active Substance: ETIFOXINE
     Indication: Product used for unknown indication
     Dosage: UNK
     Route: 048
  13. METFORMIN HYDROCHLORIDE [Concomitant]
     Active Substance: METFORMIN HYDROCHLORIDE
     Indication: Product used for unknown indication
     Dosage: UNK
     Route: 048
  14. SPIRULINE ARMONIZANTE ANTIESTRES [Concomitant]
     Indication: Prophylaxis
     Dosage: 1 DOSAGE FORM
     Route: 048
  15. SPIRULINE ARMONIZANTE ANTIESTRES [Concomitant]
     Dosage: 3 UNITS UNKNOWN
     Route: 048
  16. DOXYLAMINE SUCCINATE [Concomitant]
     Active Substance: DOXYLAMINE SUCCINATE
     Indication: Product used for unknown indication
     Dosage: 30 MILLIGRAM
     Route: 048
  17. HERBALS [Concomitant]
     Active Substance: HERBALS
     Indication: Prophylaxis
     Dosage: 1 DOSAGE FORM
     Route: 048
  18. HERBALS [Concomitant]
     Active Substance: HERBALS
     Dosage: DOSE 4,UNITS UNKNOWN
     Route: 048
  19. METHYLPREDNISOLONE SODIUM SUCCINATE [Concomitant]
     Active Substance: METHYLPREDNISOLONE SODIUM SUCCINATE
     Indication: Product used for unknown indication
     Dosage: 80 MILLIGRAM
     Route: 048
     Dates: start: 20191117, end: 20200107

REACTIONS (2)
  - Renal failure [Recovered/Resolved]
  - Hyperkalaemia [Recovered/Resolved with Sequelae]

NARRATIVE: CASE EVENT DATE: 20200109
